FAERS Safety Report 12782664 (Version 1)
Quarter: 2016Q3

REPORT INFORMATION
  Report Type: Spontaneous
  Country: GB (occurrence: GB)
  Receive Date: 20160927
  Receipt Date: 20160927
  Transmission Date: 20161109
  Serious: Yes (Other)
  Sender: FDA-Public Use
  Company Number: GB-ROCHE-1832687

PATIENT
  Sex: Female

DRUGS (1)
  1. HERCEPTIN [Suspect]
     Active Substance: TRASTUZUMAB
     Indication: BREAST CANCER
     Route: 065

REACTIONS (6)
  - Dyspnoea [Unknown]
  - Malaise [Unknown]
  - Pleural effusion [Unknown]
  - Anaphylactic shock [Unknown]
  - Cough [Unknown]
  - Sinusitis [Unknown]
